FAERS Safety Report 23467160 (Version 2)
Quarter: 2024Q1

REPORT INFORMATION
  Report Type: Spontaneous
  Country: JP (occurrence: None)
  Receive Date: 20240201
  Receipt Date: 20240206
  Transmission Date: 20240410
  Serious: Yes (Other)
  Sender: FDA-Public Use
  Company Number: 2024A021944

PATIENT
  Age: 85 Year
  Sex: Male

DRUGS (4)
  1. ONDEXXYA [Suspect]
     Active Substance: ANDEXANET ALFA
     Indication: Traumatic intracranial haemorrhage
     Dosage: B METHOD (800 MG IV AT RATE OF 30 MG/MIN FOLLOWED BY 960 MG IV AT RATE OF 8 MG/MIN FOR 2
     Route: 042
     Dates: start: 20240116, end: 20240116
  2. ONDEXXYA [Suspect]
     Active Substance: ANDEXANET ALFA
     Indication: Traumatic intracranial haemorrhage
     Dosage: DOSE UNKNOWN
     Route: 042
     Dates: start: 20240123, end: 20240123
  3. EDOXABAN TOSYLATE [Concomitant]
     Active Substance: EDOXABAN TOSYLATE
     Dosage: DOSE UNKNOWN
     Route: 048
  4. EDOXABAN TOSYLATE [Concomitant]
     Active Substance: EDOXABAN TOSYLATE
     Dosage: DOSE UNKNOWN
     Route: 048
     Dates: start: 20240119

REACTIONS (1)
  - Cerebral haemorrhage [Recovered/Resolved]

NARRATIVE: CASE EVENT DATE: 20240123
